FAERS Safety Report 7056495-0 (Version None)
Quarter: 2010Q4

REPORT INFORMATION
  Report Type: 
  Country: None (occurrence: None)
  Receive Date: 20101021
  Receipt Date: 20101015
  Transmission Date: 20110411
  Serious: Yes (Hospitalization, Disabling)
  Sender: FDA-Public Use
  Company Number: AU-PFIZER INC-2010111265

PATIENT
  Age: 30 Year
  Sex: Male
  Weight: 77 kg

DRUGS (5)
  1. CHAMPIX [Suspect]
     Indication: SMOKING CESSATION THERAPY
     Route: 048
  2. ALCOHOL [Suspect]
     Dosage: UNK
  3. MARIJUANA [Suspect]
     Dosage: UNK
  4. AMPHETAMINE SULFATE [Suspect]
     Dosage: UNK
  5. LSD [Suspect]
     Dosage: UNK

REACTIONS (2)
  - PSYCHOTIC DISORDER [None]
  - SCHIZOPHRENIFORM DISORDER [None]
